FAERS Safety Report 4934994-2 (Version None)
Quarter: 2006Q1

REPORT INFORMATION
  Report Type: 
  Country: None (occurrence: None)
  Receive Date: 20060127
  Receipt Date: 20051219
  Transmission Date: 20060701
  Serious: Yes (Other)
  Sender: FDA-Public Use
  Company Number: 2005172788

PATIENT
  Age: 70 Year
  Sex: Female
  Weight: 51.7101 kg

DRUGS (2)
  1. LYRICA [Suspect]
     Indication: NEUROPATHY PERIPHERAL
     Dosage: 100 MG (50 MG, 2 IN 1 D), ORAL
     Route: 048
     Dates: start: 20050101
  2. TEMAZEPAM [Concomitant]

REACTIONS (1)
  - WEIGHT INCREASED [None]
